FAERS Safety Report 5961892-8 (Version None)
Quarter: 2008Q4

REPORT INFORMATION
  Report Type: 
  Country: None (occurrence: None)
  Receive Date: 20081114
  Receipt Date: 20080722
  Transmission Date: 20090506
  Serious: Yes (Hospitalization)
  Sender: FDA-Public Use
  Company Number: WAES 0807USA04418

PATIENT
  Sex: Female

DRUGS (6)
  1. ISENTRESS [Suspect]
     Dosage: 400 MG/BID/PO
     Route: 048
     Dates: start: 20080201, end: 20080201
  2. DAPSONE [Concomitant]
  3. DARUNAVIR [Concomitant]
  4. DIDANOSINE [Concomitant]
  5. HYDRALAZINE HCL [Concomitant]
  6. RITONAVIR [Concomitant]

REACTIONS (1)
  - RASH [None]
